FAERS Safety Report 20142399 (Version 2)
Quarter: 2021Q4

REPORT INFORMATION
  Report Type: Spontaneous
  Country: US (occurrence: US)
  Receive Date: 20211202
  Receipt Date: 20211216
  Transmission Date: 20220303
  Serious: Yes (Other)
  Sender: FDA-Public Use
  Company Number: US-TEVA-2021-US-1982296

PATIENT
  Age: 62 Year
  Sex: Male

DRUGS (10)
  1. DOXYCYCLINE [Suspect]
     Active Substance: DOXYCYCLINE
     Indication: Arthritis infective
     Route: 065
     Dates: start: 2019, end: 2019
  2. VANCOMYCIN [Suspect]
     Active Substance: VANCOMYCIN
     Indication: Arthritis infective
     Route: 065
     Dates: start: 2008
  3. RIFAMPIN [Suspect]
     Active Substance: RIFAMPIN
     Indication: Arthritis infective
     Route: 065
     Dates: start: 2009
  4. PENICILLIN G [Suspect]
     Active Substance: PENICILLIN G
     Indication: Arthritis infective
     Route: 065
     Dates: start: 2019, end: 2019
  5. DAPTOMYCIN [Suspect]
     Active Substance: DAPTOMYCIN
     Indication: Arthritis infective
     Route: 065
     Dates: start: 2009
  6. DAPTOMYCIN [Suspect]
     Active Substance: DAPTOMYCIN
     Indication: Arthritis infective
     Route: 065
     Dates: start: 2019, end: 2019
  7. MEROPENEM [Suspect]
     Active Substance: MEROPENEM
     Indication: Arthritis infective
     Route: 065
     Dates: start: 2019, end: 2019
  8. CEFTRIAXONE [Suspect]
     Active Substance: CEFTRIAXONE
     Indication: Arthritis infective
     Route: 065
     Dates: start: 2013
  9. CEFADROXIL [Concomitant]
     Active Substance: CEFADROXIL
     Indication: Arthritis infective
     Route: 048
     Dates: start: 201505
  10. PENICILLIN V POTASSIUM [Concomitant]
     Active Substance: PENICILLIN V POTASSIUM
     Indication: Arthritis infective
     Route: 048
     Dates: start: 201304

REACTIONS (6)
  - Stevens-Johnson syndrome [Unknown]
  - Suicidal ideation [Unknown]
  - Pruritus [Unknown]
  - Eosinophilia [Unknown]
  - Drug ineffective [Unknown]
  - Rash [Unknown]

NARRATIVE: CASE EVENT DATE: 20080101
